FAERS Safety Report 4486846-2 (Version None)
Quarter: 2004Q3

REPORT INFORMATION
  Report Type: 
  Country: None (occurrence: None)
  Receive Date: 20040921
  Receipt Date: 20030818
  Transmission Date: 20050211
  Serious: Yes (Hospitalization)
  Sender: FDA-Public Use
  Company Number: 163-20785-03080561

PATIENT
  Age: 87 Year
  Sex: Female

DRUGS (1)
  1. THALOMID [Suspect]
     Indication: MULTIPLE MYELOMA
     Dosage: 200 MG, DAILY, ORAL
     Route: 048
     Dates: start: 20030703, end: 20030810

REACTIONS (4)
  - ANOREXIA [None]
  - HYPOVOLAEMIA [None]
  - SEPSIS [None]
  - SOMNOLENCE [None]
